FAERS Safety Report 4912586-9 (Version None)
Quarter: 2006Q1

REPORT INFORMATION
  Report Type: 
  Country: None (occurrence: None)
  Receive Date: 20060215
  Receipt Date: 20060213
  Transmission Date: 20060701
  Serious: Yes (Hospitalization, Disabling)
  Sender: FDA-Public Use
  Company Number: US-GLAXOSMITHKLINE-A0593490A

PATIENT
  Age: 18 Year
  Sex: Female

DRUGS (2)
  1. LAMICTAL [Suspect]
     Indication: EPILEPSY
     Dosage: 600MG UNKNOWN
     Route: 048
  2. ATENOLOL [Concomitant]

REACTIONS (4)
  - DIFFICULTY IN WALKING [None]
  - DISORIENTATION [None]
  - NYSTAGMUS [None]
  - SPEECH DISORDER [None]
